FAERS Safety Report 8334272-8 (Version None)
Quarter: 2012Q2

REPORT INFORMATION
  Report Type: 
  Country: None (occurrence: None)
  Receive Date: 20120503
  Receipt Date: 20120430
  Transmission Date: 20120825
  Serious: No
  Sender: FDA-Public Use
  Company Number: US-PFIZER INC-2011143528

PATIENT
  Sex: Female
  Weight: 76.6 kg

DRUGS (6)
  1. SERTRALINE HYDROCHLORIDE [Concomitant]
     Dosage: 100 MG, DAILY
  2. WELLBUTRIN [Concomitant]
     Dosage: 300 MG, DAILY
  3. CELEBREX [Suspect]
     Indication: SURGERY
     Dosage: UNK
     Route: 048
     Dates: start: 20100801, end: 20101101
  4. ZIAC [Concomitant]
     Dosage: 6.5/5 MG, DAILY
  5. SYNTHROID [Concomitant]
     Dosage: UNK
  6. FLAXSEED OIL [Concomitant]
     Dosage: UNK

REACTIONS (3)
  - ARTHRITIS [None]
  - BACK PAIN [None]
  - LIVER FUNCTION TEST ABNORMAL [None]
